FAERS Safety Report 16699055 (Version 1)
Quarter: 2019Q3

REPORT INFORMATION
  Report Type: Spontaneous
  Country: US (occurrence: US)
  Receive Date: 20190813
  Receipt Date: 20190813
  Transmission Date: 20191004
  Serious: No
  Sender: FDA-Public Use
  Company Number: US-PERRIGO-19US003551

PATIENT
  Age: 81 Year
  Sex: Female
  Weight: 58.96 kg

DRUGS (6)
  1. LORATADINE. [Suspect]
     Active Substance: LORATADINE
     Dosage: 10 MG, TWICE WITHIN 24 HOURS
     Route: 048
     Dates: start: 20190315, end: 20190315
  2. IPRATROPIUM [Concomitant]
     Active Substance: IPRATROPIUM
     Indication: PERENNIAL ALLERGY
     Dosage: UNK
     Route: 045
  3. LORATADINE. [Suspect]
     Active Substance: LORATADINE
     Indication: PERENNIAL ALLERGY
     Dosage: 10 MG, QD
     Route: 048
     Dates: start: 2018
  4. FLUTICASONE. [Concomitant]
     Active Substance: FLUTICASONE
     Indication: PERENNIAL ALLERGY
     Dosage: UNK
     Route: 045
  5. AMLODIPINE [Concomitant]
     Active Substance: AMLODIPINE BESYLATE
     Indication: HYPERTENSION
     Dosage: UNK
     Route: 065
  6. ZITHROMAX [Concomitant]
     Active Substance: AZITHROMYCIN DIHYDRATE
     Indication: INFLUENZA
     Dosage: UNK
     Route: 065
     Dates: start: 201903

REACTIONS (2)
  - Somnolence [Not Recovered/Not Resolved]
  - Wrong product administered [Recovered/Resolved]

NARRATIVE: CASE EVENT DATE: 20190315
